FAERS Safety Report 18001318 (Version 6)
Quarter: 2021Q2

REPORT INFORMATION
  Report Type: Report from Study
  Country: FR (occurrence: FR)
  Receive Date: 20200709
  Receipt Date: 20210513
  Transmission Date: 20210717
  Serious: Yes (Hospitalization, Disabling, Other)
  Sender: FDA-Public Use
  Company Number: FR-INCYTE CORPORATION-2019IN013266

PATIENT

DRUGS (2)
  1. JAKAVI [Suspect]
     Active Substance: RUXOLITINIB
     Indication: MYELOFIBROSIS
     Dosage: 40 MG, DAILY
     Route: 048
     Dates: start: 20190912, end: 20200127
  2. JAKAVI [Suspect]
     Active Substance: RUXOLITINIB
     Dosage: 50 MG, DAILY
     Route: 048
     Dates: start: 20200128, end: 20201009

REACTIONS (7)
  - Decreased appetite [Unknown]
  - Diverticulum intestinal [Not Recovered/Not Resolved]
  - Presyncope [Recovering/Resolving]
  - Asthenia [Recovered/Resolved]
  - Weight increased [Unknown]
  - Anaemia [Recovered/Resolved]
  - Dyspnoea [Recovering/Resolving]

NARRATIVE: CASE EVENT DATE: 20190912
